FAERS Safety Report 10305350 (Version 2)
Quarter: 2014Q1

REPORT INFORMATION
  Report Type: Spontaneous
  Country: US (occurrence: None)
  Receive Date: 20120817
  Receipt Date: 20130815
  Transmission Date: 20141002
  Serious: Yes (Other)
  Sender: FDA-Public Use
  Company Number: ADR-2011-11131

PATIENT
  Age: 22 Year
  Sex: Male

DRUGS (2)
  1. LIORESAL [Suspect]
     Indication: MUSCLE SPASTICITY
     Dosage: SEE 5 MCG, DAILY, INTR
     Route: 037
  2. LIORESAL [Suspect]
     Indication: SPINAL CORD INJURY
     Dosage: SEE 5 MCG, DAILY, INTR
     Route: 037

REACTIONS (2)
  - Therapeutic response decreased [None]
  - Muscle spasms [None]
